FAERS Safety Report 9174624 (Version 1)
Quarter: 2013Q1

REPORT INFORMATION
  Report Type: Spontaneous
  Country: DE (occurrence: None)
  Receive Date: 20130315
  Receipt Date: 20130315
  Transmission Date: 20140127
  Serious: Yes (Other)
  Sender: FDA-Public Use
  Company Number: AUR-APL-2013-02157

PATIENT
  Age: 57 Year
  Sex: Male

DRUGS (1)
  1. LAMOTRIGINE (LAMOTRIGINE) [Suspect]
     Indication: EPILEPSY
     Route: 048
     Dates: start: 201212

REACTIONS (2)
  - Local swelling [None]
  - Ear swelling [None]
